FAERS Safety Report 7909416-X (Version None)
Quarter: 2011Q4

REPORT INFORMATION
  Report Type: 
  Country: None (occurrence: None)
  Receive Date: 20111111
  Receipt Date: 20111108
  Transmission Date: 20120403
  Serious: Yes (Death)
  Sender: FDA-Public Use
  Company Number: JP-ASTRAZENECA-2011SE61742

PATIENT
  Age: 93 Year
  Sex: Female
  Weight: 32 kg

DRUGS (9)
  1. IRON SUCROSE [Suspect]
     Indication: NORMOCHROMIC NORMOCYTIC ANAEMIA
     Route: 041
     Dates: start: 20110827, end: 20110829
  2. ADONA [Concomitant]
     Indication: GASTROINTESTINAL HAEMORRHAGE
     Route: 041
     Dates: start: 20110720, end: 20110820
  3. REPTILASE [Concomitant]
     Indication: GASTROINTESTINAL HAEMORRHAGE
     Route: 041
     Dates: start: 20110720, end: 20110820
  4. MINOCYCLINE HCL [Concomitant]
     Indication: PNEUMONIA
     Route: 041
     Dates: start: 20110910, end: 20110912
  5. UNASYN [Concomitant]
     Indication: PNEUMONIA
     Route: 041
     Dates: start: 20110906, end: 20110912
  6. TRANEXAMIC ACID [Concomitant]
     Indication: GASTROINTESTINAL HAEMORRHAGE
     Route: 041
     Dates: start: 20110720, end: 20110820
  7. OMEPRAZOLE [Suspect]
     Indication: GASTROINTESTINAL HAEMORRHAGE
     Route: 041
     Dates: start: 20110719, end: 20110829
  8. FERROUS SULFATE TAB [Suspect]
     Indication: NORMOCHROMIC NORMOCYTIC ANAEMIA
     Route: 041
     Dates: start: 20110730, end: 20110826
  9. UNASYN [Concomitant]
     Route: 041
     Dates: start: 20110719, end: 20110728

REACTIONS (3)
  - WHITE BLOOD CELL COUNT DECREASED [None]
  - PLATELET COUNT DECREASED [None]
  - PNEUMONIA [None]
